FAERS Safety Report 11692652 (Version 1)
Quarter: 2015Q4

REPORT INFORMATION
  Report Type: Spontaneous
  Country: US (occurrence: None)
  Receive Date: 20151102
  Receipt Date: 20151102
  Transmission Date: 20160304
  Serious: Yes (Hospitalization)
  Sender: FDA-Public Use
  Company Number: None

PATIENT
  Age: 54 Year
  Sex: Female

DRUGS (2)
  1. PLEGRIDY [Suspect]
     Active Substance: PEGINTERFERON BETA-1A
     Indication: MULTIPLE SCLEROSIS
     Route: 058
     Dates: start: 20150612, end: 20151004
  2. PLEGRIDY [Suspect]
     Active Substance: PEGINTERFERON BETA-1A
     Indication: MULTIPLE SCLEROSIS
     Dosage: 1-63 MCG PEN/1-94 MCG PEN DAY 1/DAY 15, THEN 125 MCG Q SUB-CUT
     Route: 058
     Dates: start: 20150515, end: 20150611

REACTIONS (3)
  - Feeling abnormal [None]
  - Immune thrombocytopenic purpura [None]
  - Malaise [None]

NARRATIVE: CASE EVENT DATE: 20151005
